FAERS Safety Report 8366124-1 (Version None)
Quarter: 2012Q2

REPORT INFORMATION
  Report Type: 
  Country: None (occurrence: None)
  Receive Date: 20120516
  Receipt Date: 20120516
  Transmission Date: 20120825
  Serious: No
  Sender: FDA-Public Use
  Company Number: None

PATIENT
  Age: 57 Year
  Sex: Female
  Weight: 88.4514 kg

DRUGS (1)
  1. QUETIAPINE FUMARATE [Suspect]
     Indication: MAJOR DEPRESSION
     Dosage: 300 MG HS ORAL
     Route: 048
     Dates: start: 20120428

REACTIONS (3)
  - CONDITION AGGRAVATED [None]
  - PRODUCT QUALITY ISSUE [None]
  - ABDOMINAL DISCOMFORT [None]
